FAERS Safety Report 7503421-3 (Version None)
Quarter: 2011Q2

REPORT INFORMATION
  Report Type: 
  Country: None (occurrence: None)
  Receive Date: 20110525
  Receipt Date: 20110517
  Transmission Date: 20111010
  Serious: Yes (Hospitalization)
  Sender: FDA-Public Use
  Company Number: D0071473A

PATIENT
  Age: 61 Year
  Sex: Male

DRUGS (5)
  1. LITHIUM CARBONATE [Suspect]
     Indication: DEPRESSION
     Dosage: 675MG PER DAY
     Route: 048
     Dates: start: 20030101
  2. LORAZEPAM [Concomitant]
     Route: 065
  3. TRANYLCYPROMINE SULFATE [Suspect]
     Indication: DEPRESSION
     Dosage: 10MG PER DAY
     Route: 065
     Dates: end: 20100101
  4. DECORTIN H [Concomitant]
     Route: 065
  5. ZOPICLON [Concomitant]
     Route: 065
     Dates: start: 20100101

REACTIONS (5)
  - TREMOR [None]
  - APPETITE DISORDER [None]
  - DRUG INTERACTION [None]
  - ILL-DEFINED DISORDER [None]
  - TOXICITY TO VARIOUS AGENTS [None]
